FAERS Safety Report 23751787 (Version 2)
Quarter: 2024Q2

REPORT INFORMATION
  Report Type: Spontaneous
  Country: IT (occurrence: None)
  Receive Date: 20240417
  Receipt Date: 20240422
  Transmission Date: 20240716
  Serious: Yes (Hospitalization, Other)
  Sender: FDA-Public Use
  Company Number: IT-ROCHE-3541865

PATIENT

DRUGS (1)
  1. OCREVUS [Suspect]
     Active Substance: OCRELIZUMAB
     Indication: Multiple sclerosis
     Route: 065

REACTIONS (7)
  - Hypogammaglobulinaemia [Unknown]
  - Pneumonia [Unknown]
  - Pyelonephritis [Unknown]
  - Urinary tract infection [Unknown]
  - Respiratory tract infection [Unknown]
  - Skin infection [Unknown]
  - Gastrointestinal infection [Unknown]
